FAERS Safety Report 9375104 (Version 2)
Quarter: 2013Q3

REPORT INFORMATION
  Report Type: Spontaneous
  Country: US (occurrence: US)
  Receive Date: 20130628
  Receipt Date: 20130802
  Transmission Date: 20140515
  Serious: No
  Sender: FDA-Public Use
  Company Number: US-PFIZER INC-2013192401

PATIENT
  Age: 30 Year
  Sex: Female
  Weight: 83.45 kg

DRUGS (5)
  1. NEURONTIN [Suspect]
     Indication: RHEUMATOID ARTHRITIS
     Dosage: 300 MG, 3X/DAY
     Route: 048
     Dates: start: 201305, end: 201306
  2. NEURONTIN [Suspect]
     Indication: FIBROMYALGIA
     Dosage: 300 MG, 3X/DAY
     Route: 048
     Dates: start: 20130612
  3. METHOTREXATE [Concomitant]
     Dosage: 25 MG, 4X/WEEK
  4. PREDNISONE [Concomitant]
     Dosage: 50 MG, UNK
  5. TRAMADOL [Concomitant]
     Dosage: UNK, 3X/DAY

REACTIONS (5)
  - Off label use [Unknown]
  - Pain [Not Recovered/Not Resolved]
  - Hypokinesia [Not Recovered/Not Resolved]
  - Burning sensation [Not Recovered/Not Resolved]
  - Drug ineffective for unapproved indication [Unknown]
